FAERS Safety Report 16501308 (Version 1)
Quarter: 2019Q3

REPORT INFORMATION
  Report Type: Spontaneous
  Country: US (occurrence: US)
  Receive Date: 20190628
  Receipt Date: 20190628
  Transmission Date: 20191004
  Serious: Yes (Hospitalization, Disabling, Other)
  Sender: FDA-Public Use
  Company Number: None

PATIENT
  Age: 51 Year
  Sex: Male
  Weight: 110.7 kg

DRUGS (1)
  1. VALSARTAN AND HYDRO TABLETS,USP [Suspect]
     Active Substance: HYDROCHLOROTHIAZIDE\VALSARTAN
     Indication: HYPERTENSION
     Dosage: ?          QUANTITY:90 TABLET(S);?
     Route: 048
     Dates: start: 20160901, end: 20180803

REACTIONS (2)
  - Recalled product administered [None]
  - Prostate cancer [None]

NARRATIVE: CASE EVENT DATE: 20171103
